FAERS Safety Report 6214243-8 (Version None)
Quarter: 2009Q2

REPORT INFORMATION
  Report Type: 
  Country: None (occurrence: None)
  Receive Date: 20090604
  Receipt Date: 20090526
  Transmission Date: 20091009
  Serious: Yes (Other)
  Sender: FDA-Public Use
  Company Number: PHEH2009US05224

PATIENT
  Age: 90 Year
  Sex: Female

DRUGS (10)
  1. FEMARA [Suspect]
  2. SPIRIVA [Concomitant]
     Dosage: 18 UG, UNK
  3. ADVAIR HFA [Concomitant]
     Dosage: 250 UNK, UNK
  4. FUROSEMIDE [Concomitant]
     Dosage: 20 MG, UNK
  5. HYDRALAZINE HCL [Concomitant]
  6. LIBRIUM [Concomitant]
  7. LOPRESSOR [Concomitant]
  8. POTASSIUM CHLORIDE [Concomitant]
  9. ASPIRIN [Concomitant]
     Dosage: 81 MG, UNK
  10. LIPITOR [Concomitant]

REACTIONS (4)
  - AGITATION [None]
  - AMNESIA [None]
  - DIARRHOEA [None]
  - NAUSEA [None]
